FAERS Safety Report 23146466 (Version 1)
Quarter: 2023Q4

REPORT INFORMATION
  Report Type: Other
  Country: None (occurrence: US)
  Receive Date: 20231104
  Receipt Date: 20231104
  Transmission Date: 20240109
  Serious: Yes (Death, Life-Threatening, Hospitalization, Disabling)
  Sender: FDA-Public Use
  Company Number: US-Nostrum Laboratories, Inc.-2147805

PATIENT
  Age: 47 Year
  Sex: Female

DRUGS (2)
  1. BUTALBITAL, ACETAMINOPHEN AND CAFFEINE WITH CODEINE PHOSPHATE [Suspect]
     Active Substance: ACETAMINOPHEN\BUTALBITAL\CAFFEINE\CODEINE PHOSPHATE
     Indication: Ankylosing spondylitis
     Route: 048
  2. DIAZEPAM [Interacting]
     Active Substance: DIAZEPAM
     Route: 048

REACTIONS (4)
  - Chronic gastrointestinal bleeding [Fatal]
  - Drug withdrawal syndrome [Fatal]
  - Haematemesis [Fatal]
  - Melaena [Fatal]
